FAERS Safety Report 5406469-8 (Version None)
Quarter: 2007Q3

REPORT INFORMATION
  Report Type: 
  Country: None (occurrence: None)
  Receive Date: 20070806
  Receipt Date: 20070726
  Transmission Date: 20080115
  Serious: Yes (Death, Hospitalization)
  Sender: FDA-Public Use
  Company Number: RU-ELI_LILLY_AND_COMPANY-RU200707001020

PATIENT
  Age: 55 Year
  Sex: Male

DRUGS (8)
  1. PEMETREXED [Suspect]
     Indication: NON-SMALL CELL LUNG CANCER
     Dosage: 500 MG/M2, UNKNOWN
     Route: 042
     Dates: start: 20070525
  2. *BORTEZOMIB [Suspect]
     Indication: NON-SMALL CELL LUNG CANCER
     Dosage: 1.6 MG/M2, UNKNOWN
     Route: 042
     Dates: start: 20060526
  3. FOLIC ACID [Concomitant]
     Indication: SUPPLEMENTATION THERAPY
     Dosage: UNK, UNK
     Dates: start: 20060516
  4. VITAMIN B-12 [Concomitant]
     Indication: SUPPLEMENTATION THERAPY
     Dosage: UNK, UNK
     Dates: start: 20060516
  5. VERAPAMIL [Concomitant]
     Dates: start: 20060524
  6. DEXAMETHASONE 0.5MG TAB [Concomitant]
     Dates: start: 20060524
  7. CIPROFLOXACIN [Concomitant]
     Dates: start: 20060530, end: 20060603
  8. EUPHYLLIN /GFR/ [Concomitant]
     Dosage: 2.4 MG, UNK

REACTIONS (1)
  - MALIGNANT NEOPLASM PROGRESSION [None]
